FAERS Safety Report 25220967 (Version 1)
Quarter: 2025Q2

REPORT INFORMATION
  Report Type: Spontaneous
  Country: GB (occurrence: GB)
  Receive Date: 20250421
  Receipt Date: 20250421
  Transmission Date: 20250716
  Serious: Yes (Other)
  Sender: ELI LILLY AND COMPANY
  Company Number: None

PATIENT
  Age: 68 Year
  Sex: Female
  Weight: 89 kg

DRUGS (8)
  1. MOUNJARO [Suspect]
     Active Substance: TIRZEPATIDE
     Indication: Weight control
     Dosage: 2.5 MG, WEEKLY (1/W)
     Route: 065
     Dates: start: 20250305, end: 20250321
  2. ATORVASTATIN [Concomitant]
     Active Substance: ATORVASTATIN
     Indication: Pancreastatin decreased
     Dates: start: 2010
  3. AZITHROMYCIN [Concomitant]
     Active Substance: AZITHROMYCIN
     Indication: Pneumonitis
     Dates: start: 2021
  4. CANDESARTAN [Concomitant]
     Active Substance: CANDESARTAN
     Indication: Blood pressure decreased
     Dates: start: 2010
  5. INDAPAMIDE [Concomitant]
     Active Substance: INDAPAMIDE
     Indication: Blood pressure decreased
     Dates: start: 2010
  6. CARBOCYSTEINE [Concomitant]
     Active Substance: CARBOCYSTEINE
     Indication: Sputum decreased
     Dates: start: 2020
  7. SYMBICORT [Concomitant]
     Active Substance: BUDESONIDE\FORMOTEROL FUMARATE DIHYDRATE
     Indication: Asthma
     Dates: start: 2010
  8. ALBUTEROL [Concomitant]
     Active Substance: ALBUTEROL
     Indication: Asthma
     Dates: start: 2010

REACTIONS (5)
  - Urticaria [Recovered/Resolved]
  - Rash [Unknown]
  - Skin burning sensation [Unknown]
  - Neck mass [Unknown]
  - Mass [Unknown]

NARRATIVE: CASE EVENT DATE: 20250323
